FAERS Safety Report 16772668 (Version 2)
Quarter: 2021Q2

REPORT INFORMATION
  Report Type: Spontaneous
  Country: US (occurrence: US)
  Receive Date: 20190904
  Receipt Date: 20210527
  Transmission Date: 20210716
  Serious: Yes (Other)
  Sender: FDA-Public Use
  Company Number: US-SA-2019SA246160

PATIENT
  Sex: Female

DRUGS (1)
  1. DUPIXENT [Suspect]
     Active Substance: DUPILUMAB
     Indication: DERMATITIS ATOPIC
     Dosage: 300 MG, QOW
     Route: 058

REACTIONS (3)
  - Staphylococcal infection [Not Recovered/Not Resolved]
  - Rebound atopic dermatitis [Unknown]
  - Product dose omission issue [Not Recovered/Not Resolved]
